FAERS Safety Report 8514111-2 (Version None)
Quarter: 2012Q3

REPORT INFORMATION
  Report Type: 
  Country: None (occurrence: None)
  Receive Date: 20120717
  Receipt Date: 20120709
  Transmission Date: 20120928
  Serious: Yes (Death, Other)
  Sender: FDA-Public Use
  Company Number: US-BAYER-200940572NA

PATIENT
  Age: 76 Year
  Sex: Male
  Weight: 81.633 kg

DRUGS (11)
  1. NORVASC [Concomitant]
     Indication: PRODUCT USED FOR UNKNOWN INDICATION
  2. GLUCOSAN [Concomitant]
  3. ASPIRIN [Concomitant]
     Dosage: 81 MG, QD
  4. IOPAMIDOL [Concomitant]
  5. TRASYLOL [Suspect]
     Indication: MITRAL VALVE REPAIR
  6. SPIRONOLACTONE [Concomitant]
     Indication: PRODUCT USED FOR UNKNOWN INDICATION
     Dosage: UNK
  7. TRASYLOL [Suspect]
     Indication: CORONARY ARTERY BYPASS
     Route: 042
     Dates: start: 20050121
  8. GLYNASE [Concomitant]
  9. LASIX [Concomitant]
     Dosage: 40 MG, BID
     Route: 042
  10. UNIVASC [Concomitant]
     Dosage: 15 MG, QD
  11. SYNTHROID [Concomitant]
     Indication: PRODUCT USED FOR UNKNOWN INDICATION

REACTIONS (14)
  - RENAL INJURY [None]
  - ANXIETY [None]
  - ANHEDONIA [None]
  - PAIN [None]
  - PSYCHOLOGICAL TRAUMA [None]
  - EMOTIONAL DISTRESS [None]
  - DEATH [None]
  - INJURY [None]
  - MULTI-ORGAN FAILURE [None]
  - RENAL IMPAIRMENT [None]
  - STRESS [None]
  - RENAL FAILURE [None]
  - UNEVALUABLE EVENT [None]
  - FEAR [None]
